FAERS Safety Report 20669602 (Version 1)
Quarter: 2022Q2

REPORT INFORMATION
  Report Type: Spontaneous
  Country: US (occurrence: US)
  Receive Date: 20220404
  Receipt Date: 20220404
  Transmission Date: 20220720
  Serious: No
  Sender: FDA-Public Use
  Company Number: US-GALDERMA-US2022003144

PATIENT

DRUGS (7)
  1. PROACTIV MD ADAPALENE ACNE TREATMENT [Suspect]
     Active Substance: ADAPALENE
     Indication: Acne
     Dosage: 1 DOSAGE FORM, QD
     Route: 061
     Dates: start: 202201, end: 202203
  2. PROACTIV MD DAILY OIL CONTROL SPF 30 [Suspect]
     Active Substance: AVOBENZONE\OCTISALATE\OCTOCRYLENE
     Indication: Acne
     Dosage: 1 DOSAGE FORM, QD
     Route: 061
     Dates: start: 202201, end: 202203
  3. Proactiv MD Ultra Gentle Cleanser [Concomitant]
     Indication: Acne
     Dosage: 1 DOSAGE FORM, BID
     Route: 061
     Dates: start: 202201, end: 202203
  4. Proactiv MD Ultra Hydrating Moisturizer [Concomitant]
     Indication: Acne
     Dosage: 1 DOSAGE FORM, BID
     Route: 061
     Dates: start: 202201, end: 202203
  5. Proactiv Post Acne Scar Gel [Concomitant]
     Indication: Acne
     Dosage: 1 DOSAGE FORM, BID
     Route: 061
     Dates: start: 202201, end: 202203
  6. VITAMINS [Concomitant]
     Active Substance: VITAMINS
     Indication: Product used for unknown indication
     Route: 065
  7. ASCORBIC ACID\ZINC [Concomitant]
     Active Substance: ASCORBIC ACID\ZINC
     Indication: Product used for unknown indication
     Route: 065

REACTIONS (8)
  - Acne [Recovering/Resolving]
  - Erythema [Recovering/Resolving]
  - Pain of skin [Recovering/Resolving]
  - Rash macular [Recovering/Resolving]
  - Skin irritation [Recovering/Resolving]
  - Dry skin [Recovering/Resolving]
  - Pallor [Recovering/Resolving]
  - Drug ineffective [Unknown]

NARRATIVE: CASE EVENT DATE: 20220101
